FAERS Safety Report 25184970 (Version 1)
Quarter: 2025Q2

REPORT INFORMATION
  Report Type: Spontaneous
  Country: US (occurrence: US)
  Receive Date: 20250410
  Receipt Date: 20250410
  Transmission Date: 20250716
  Serious: No
  Sender: PFIZER
  Company Number: US-PFIZER INC-PV202500042351

PATIENT
  Age: 5 Decade
  Sex: Female

DRUGS (2)
  1. RIFABUTIN [Suspect]
     Active Substance: RIFABUTIN
  2. RIFAMPIN [Suspect]
     Active Substance: RIFAMPIN

REACTIONS (1)
  - Drug intolerance [Unknown]
